FAERS Safety Report 6818468-X (Version None)
Quarter: 2010Q3

REPORT INFORMATION
  Report Type: 
  Country: None (occurrence: None)
  Receive Date: 20100706
  Receipt Date: 20080407
  Transmission Date: 20110219
  Serious: No
  Sender: FDA-Public Use
  Company Number: US-PFIZER INC-2008031592

PATIENT
  Sex: Female
  Weight: 68.04 kg

DRUGS (4)
  1. ZITHROMAX [Suspect]
     Indication: UPPER RESPIRATORY TRACT INFECTION
     Dates: start: 20080331, end: 20080401
  2. ZITHROMAX [Suspect]
     Indication: OROPHARYNGEAL PAIN
  3. WARFARIN SODIUM [Concomitant]
     Indication: THROMBOSIS
  4. TYLENOL [Concomitant]

REACTIONS (1)
  - CYSTITIS [None]
